FAERS Safety Report 10543087 (Version 1)
Quarter: 2014Q4

REPORT INFORMATION
  Report Type: Spontaneous
  Country: US (occurrence: US)
  Receive Date: 20141027
  Receipt Date: 20141027
  Transmission Date: 20150529
  Serious: Yes (Hospitalization, Other)
  Sender: FDA-Public Use
  Company Number: US-JNJFOC-20141011561

PATIENT
  Age: 75 Year
  Sex: Male
  Weight: 90.72 kg

DRUGS (11)
  1. PHENYTOIN. [Suspect]
     Active Substance: PHENYTOIN
     Indication: SEIZURE
     Route: 065
     Dates: start: 2014, end: 2014
  2. PHENYTOIN. [Suspect]
     Active Substance: PHENYTOIN
     Indication: SEIZURE
     Route: 065
     Dates: start: 2014
  3. PHENOBARBITAL. [Suspect]
     Active Substance: PHENOBARBITAL
     Indication: SEIZURE
     Dosage: 64.8 IN THE MORNING AND EVENING
     Route: 065
     Dates: start: 2014
  4. XARELTO [Suspect]
     Active Substance: RIVAROXABAN
     Indication: THROMBOSIS
     Route: 048
     Dates: start: 2014
  5. PAROXETINE [Suspect]
     Active Substance: PAROXETINE\PAROXETINE HYDROCHLORIDE
     Indication: DEPRESSION
     Route: 065
     Dates: end: 201410
  6. PHENYTOIN. [Suspect]
     Active Substance: PHENYTOIN
     Indication: SEIZURE
     Route: 065
     Dates: end: 2014
  7. PHENOBARBITAL. [Suspect]
     Active Substance: PHENOBARBITAL
     Indication: SEIZURE
     Route: 065
     Dates: end: 2014
  8. PHENYTOIN. [Suspect]
     Active Substance: PHENYTOIN
     Indication: SEIZURE
     Route: 065
     Dates: start: 2014, end: 2014
  9. VITAMIN D3 [Concomitant]
     Active Substance: CHOLECALCIFEROL
     Dosage: 2000 (UNITS UNSPECIFIED)
     Route: 065
  10. VITAMIN B COMPLEX [Concomitant]
     Active Substance: CYANOCOBALAMIN\DEXPANTHENOL\NIACINAMIDE\PYRIDOXINE HYDROCHLORIDE\RIBOFLAVIN 5^-PHOSPHATE SODIUM\THIAMINE HYDROCHLORIDE\VITAMIN B COMPLEX
     Route: 065
  11. IRON [Concomitant]
     Active Substance: IRON
     Indication: BLOOD IRON DECREASED
     Route: 065

REACTIONS (17)
  - Toxicity to various agents [Unknown]
  - Hypomagnesaemia [Unknown]
  - Dehydration [Unknown]
  - Asthenia [Not Recovered/Not Resolved]
  - Vomiting [Recovered/Resolved]
  - Seizure [Recovered/Resolved]
  - Viral infection [Unknown]
  - Diarrhoea [Unknown]
  - Blood potassium decreased [Unknown]
  - Confusional state [Not Recovered/Not Resolved]
  - Tremor [Recovered/Resolved]
  - Generalised tonic-clonic seizure [Recovered/Resolved]
  - Pruritus [Unknown]
  - Somnolence [Recovered/Resolved]
  - Fatigue [Not Recovered/Not Resolved]
  - Hyponatraemia [Unknown]
  - Fall [Unknown]

NARRATIVE: CASE EVENT DATE: 2014
